FAERS Safety Report 8093005-3 (Version None)
Quarter: 2012Q1

REPORT INFORMATION
  Report Type: 
  Country: None (occurrence: None)
  Receive Date: 20120128
  Receipt Date: 20110910
  Transmission Date: 20120608
  Serious: No
  Sender: FDA-Public Use
  Company Number: US-ABBOTT-08P-163-0484790-00

PATIENT
  Sex: Male
  Weight: 88.076 kg

DRUGS (2)
  1. NEXIUM [Concomitant]
     Indication: PRODUCT USED FOR UNKNOWN INDICATION
  2. HUMIRA [Suspect]
     Indication: CROHN'S DISEASE
     Route: 058
     Dates: start: 20071001

REACTIONS (9)
  - PAIN [None]
  - INCORRECT DOSE ADMINISTERED [None]
  - RELAPSING FEVER [None]
  - RESPIRATORY TRACT CONGESTION [None]
  - NAUSEA [None]
  - HEADACHE [None]
  - INJECTION SITE DISCOLOURATION [None]
  - INFLUENZA [None]
  - DIARRHOEA [None]
